FAERS Safety Report 17424950 (Version 1)
Quarter: 2020Q1

REPORT INFORMATION
  Report Type: Report from Study
  Country: None (occurrence: US)
  Receive Date: 20200217
  Receipt Date: 20200217
  Transmission Date: 20200409
  Serious: Yes (Hospitalization)
  Sender: FDA-Public Use
  Company Number: US-ABBVIE-18K-163-2571334-00

PATIENT
  Sex: Female
  Weight: 97.61 kg

DRUGS (2)
  1. HUMIRA [Suspect]
     Active Substance: ADALIMUMAB
     Dosage: CITRATE FREE
     Route: 058
     Dates: start: 20181220
  2. HUMIRA [Suspect]
     Active Substance: ADALIMUMAB
     Indication: ANKYLOSING SPONDYLITIS
     Route: 058
     Dates: end: 201812

REACTIONS (11)
  - Pain in extremity [Not Recovered/Not Resolved]
  - Seizure [Unknown]
  - Palpitations [Not Recovered/Not Resolved]
  - Postmenopausal haemorrhage [Unknown]
  - C-reactive protein increased [Unknown]
  - Sinusitis noninfective [Unknown]
  - Ankylosing spondylitis [Recovered/Resolved]
  - Fibromyalgia [Unknown]
  - Blood pressure increased [Unknown]
  - Arthralgia [Not Recovered/Not Resolved]
  - Rash papular [Recovered/Resolved]

NARRATIVE: CASE EVENT DATE: 2018
